FAERS Safety Report 20391985 (Version 1)
Quarter: 2022Q1

REPORT INFORMATION
  Report Type: Spontaneous
  Country: US (occurrence: US)
  Receive Date: 20220128
  Receipt Date: 20220128
  Transmission Date: 20220423
  Serious: No
  Sender: FDA-Public Use
  Company Number: US-EPIZYME, INC-2021USEPIZYME0415

PATIENT

DRUGS (2)
  1. TAZVERIK [Suspect]
     Active Substance: TAZEMETOSTAT HYDROBROMIDE
     Indication: Follicular lymphoma
     Dosage: 600 MG, BID
     Route: 048
     Dates: start: 20211126
  2. GUAIFENESIN [Concomitant]
     Active Substance: GUAIFENESIN
     Indication: Product used for unknown indication
     Dosage: 200 MG
     Route: 065

REACTIONS (1)
  - Somnolence [Not Recovered/Not Resolved]
